FAERS Safety Report 20787975 (Version 1)
Quarter: 2022Q2

REPORT INFORMATION
  Report Type: Spontaneous
  Country: US (occurrence: US)
  Receive Date: 20220505
  Receipt Date: 20220505
  Transmission Date: 20220721
  Serious: Yes (Other)
  Sender: FDA-Public Use
  Company Number: US-Shilpa Medicare Limited-SML-US-2022-00460

PATIENT
  Age: 71 Year
  Sex: Male

DRUGS (5)
  1. GEMCITABINE [Suspect]
     Active Substance: GEMCITABINE
     Indication: Fibrosarcoma
  2. DOCETAXEL [Suspect]
     Active Substance: DOCETAXEL
     Indication: Fibrosarcoma
  3. DOXORUBICIN [Suspect]
     Active Substance: DOXORUBICIN
     Indication: Fibrosarcoma
  4. OLARATUMAB [Suspect]
     Active Substance: OLARATUMAB
     Indication: Fibrosarcoma
  5. TRABECTEDIN [Suspect]
     Active Substance: TRABECTEDIN
     Indication: Fibrosarcoma

REACTIONS (2)
  - Disease progression [Unknown]
  - Drug ineffective [Unknown]
